FAERS Safety Report 25002089 (Version 1)
Quarter: 2025Q1

REPORT INFORMATION
  Report Type: Spontaneous
  Country: ZA (occurrence: ZA)
  Receive Date: 20250224
  Receipt Date: 20250224
  Transmission Date: 20250408
  Serious: Yes (Other)
  Sender: IPCA
  Company Number: ZA-IPCA LABORATORIES LIMITED-IPC-2025-ZA-000396

PATIENT

DRUGS (2)
  1. LAMOTRIGINE [Suspect]
     Active Substance: LAMOTRIGINE
     Indication: Depression
     Route: 065
  2. BUTRIOPINE [Concomitant]
     Indication: Asthma
     Route: 065

REACTIONS (2)
  - Restrictive cardiomyopathy [Unknown]
  - Eosinophilic myocarditis [Recovered/Resolved]
